FAERS Safety Report 22321698 (Version 1)
Quarter: 2023Q2

REPORT INFORMATION
  Report Type: Spontaneous
  Country: PL (occurrence: PL)
  Receive Date: 20230515
  Receipt Date: 20230515
  Transmission Date: 20230721
  Serious: Yes (Other)
  Sender: FDA-Public Use
  Company Number: PL-STRIDES ARCOLAB LIMITED-2023SP007002

PATIENT
  Sex: Female

DRUGS (26)
  1. METHOTREXATE [Suspect]
     Active Substance: METHOTREXATE
     Indication: Epstein-Barr virus infection
     Dosage: UNK; (HYPERCVAD REGIMEN)
     Route: 065
  2. METHOTREXATE [Suspect]
     Active Substance: METHOTREXATE
     Indication: Plasmablastic lymphoma
  3. DEXAMETHASONE [Suspect]
     Active Substance: DEXAMETHASONE
     Indication: Epstein-Barr virus infection
     Dosage: UNK; (HYPERCVAD REGIMEN)
     Route: 065
  4. DEXAMETHASONE [Suspect]
     Active Substance: DEXAMETHASONE
     Indication: Plasmablastic lymphoma
  5. ETOPOSIDE [Suspect]
     Active Substance: ETOPOSIDE
     Indication: Epstein-Barr virus infection
     Dosage: UNK; (EPOCH REGIMEN)
     Route: 065
  6. ETOPOSIDE [Suspect]
     Active Substance: ETOPOSIDE
     Indication: Plasmablastic lymphoma
     Dosage: UNK; (ICE PROTOCOL)
     Route: 065
  7. DOXORUBICIN [Suspect]
     Active Substance: DOXORUBICIN
     Indication: Epstein-Barr virus infection
     Dosage: UNK; (EPOCH REGIMEN)
     Route: 065
  8. DOXORUBICIN [Suspect]
     Active Substance: DOXORUBICIN
     Indication: Plasmablastic lymphoma
     Dosage: UNK; (HYPERCVAD REGIMEN)
     Route: 065
  9. PREDNISOLONE [Suspect]
     Active Substance: PREDNISOLONE
     Indication: Epstein-Barr virus infection
     Dosage: UNK; (EPOCH REGIMEN)
     Route: 065
  10. PREDNISOLONE [Suspect]
     Active Substance: PREDNISOLONE
     Indication: Plasmablastic lymphoma
  11. CARBOPLATIN [Suspect]
     Active Substance: CARBOPLATIN
     Indication: Epstein-Barr virus infection
     Dosage: UNK; (ICE PROTOCOL)
     Route: 065
  12. CARBOPLATIN [Suspect]
     Active Substance: CARBOPLATIN
     Indication: Plasmablastic lymphoma
  13. CYCLOPHOSPHAMIDE [Suspect]
     Active Substance: CYCLOPHOSPHAMIDE
     Indication: Epstein-Barr virus infection
     Dosage: UNK; (EPOCH REGIMEN)
     Route: 065
  14. CYCLOPHOSPHAMIDE [Suspect]
     Active Substance: CYCLOPHOSPHAMIDE
     Indication: Plasmablastic lymphoma
     Dosage: UNK; (HYPERCVAD REGIMEN)
     Route: 065
  15. VINCRISTINE [Suspect]
     Active Substance: VINCRISTINE
     Indication: Epstein-Barr virus infection
     Dosage: UNK; (EPOCH REGIMEN)
     Route: 065
  16. VINCRISTINE [Suspect]
     Active Substance: VINCRISTINE
     Indication: Plasmablastic lymphoma
     Dosage: UNK; (HYPERCVAD REGIMEN)
     Route: 065
  17. CYTARABINE [Suspect]
     Active Substance: CYTARABINE
     Indication: Epstein-Barr virus infection
     Dosage: UNK; (HYPERCVAD REGIMEN)
     Route: 065
  18. CYTARABINE [Suspect]
     Active Substance: CYTARABINE
     Indication: Plasmablastic lymphoma
  19. LEUCOVORIN [Suspect]
     Active Substance: LEUCOVORIN
     Indication: Epstein-Barr virus infection
     Dosage: UNK; (HYPERCVAD REGIMEN)
     Route: 065
  20. LEUCOVORIN [Suspect]
     Active Substance: LEUCOVORIN
     Indication: Plasmablastic lymphoma
  21. METHYLPREDNISOLONE [Suspect]
     Active Substance: METHYLPREDNISOLONE
     Indication: Epstein-Barr virus infection
     Dosage: UNK; (HYPERCVAD REGIMEN)
     Route: 065
  22. METHYLPREDNISOLONE [Suspect]
     Active Substance: METHYLPREDNISOLONE
     Indication: Plasmablastic lymphoma
  23. BORTEZOMIB [Suspect]
     Active Substance: BORTEZOMIB
     Indication: Epstein-Barr virus infection
     Dosage: UNK
     Route: 065
  24. BORTEZOMIB [Suspect]
     Active Substance: BORTEZOMIB
     Indication: Plasmablastic lymphoma
  25. IFOSFAMIDE [Concomitant]
     Active Substance: IFOSFAMIDE
     Indication: Plasmablastic lymphoma
     Dosage: UNK; (ICE PROTOCOL)
     Route: 065
  26. IFOSFAMIDE [Concomitant]
     Active Substance: IFOSFAMIDE
     Indication: Epstein-Barr virus infection

REACTIONS (7)
  - Blood disorder [Unknown]
  - Infection [Unknown]
  - Sepsis [Unknown]
  - Disease recurrence [Unknown]
  - Neoplasm progression [Unknown]
  - Drug ineffective [Unknown]
  - Off label use [Unknown]
